FAERS Safety Report 5947480-8 (Version None)
Quarter: 2008Q4

REPORT INFORMATION
  Report Type: 
  Country: None (occurrence: None)
  Receive Date: 20081110
  Receipt Date: 20081030
  Transmission Date: 20090506
  Serious: Yes (Other)
  Sender: FDA-Public Use
  Company Number: PHHY2008DK27044

PATIENT
  Sex: Male
  Weight: 68 kg

DRUGS (2)
  1. EXELON [Suspect]
     Indication: DEMENTIA ALZHEIMER'S TYPE
     Dosage: 4.6 MG, QD
     Route: 062
     Dates: start: 20080815, end: 20080916
  2. PREDNISOLONE [Concomitant]
     Dosage: 2.5 MG/DAY
     Route: 048

REACTIONS (3)
  - DECREASED ACTIVITY [None]
  - GAIT DISTURBANCE [None]
  - MALAISE [None]
